FAERS Safety Report 9632877 (Version 3)
Quarter: 2014Q1

REPORT INFORMATION
  Report Type: Report from Study
  Country: PR (occurrence: PR)
  Receive Date: 20131018
  Receipt Date: 20140102
  Transmission Date: 20141002
  Serious: Yes (Life-Threatening, Hospitalization, Other)
  Sender: FDA-Public Use
  Company Number: PR-ABBVIE-13P-131-1128011-00

PATIENT
  Sex: Female
  Weight: 108.96 kg

DRUGS (3)
  1. HUMIRA [Suspect]
     Indication: RHEUMATOID ARTHRITIS
     Route: 058
     Dates: start: 201304, end: 201311
  2. HUMIRA [Suspect]
     Indication: PSORIATIC ARTHROPATHY
  3. ASPIRIN [Concomitant]
     Indication: CARDIAC DISORDER
     Route: 048

REACTIONS (7)
  - Peripheral arterial occlusive disease [Unknown]
  - Cellulitis [Recovering/Resolving]
  - Intentional drug misuse [Unknown]
  - Peripheral arterial occlusive disease [Not Recovered/Not Resolved]
  - Venous occlusion [Not Recovered/Not Resolved]
  - Pain in extremity [Not Recovered/Not Resolved]
  - Pain [Unknown]
